FAERS Safety Report 18400606 (Version 5)
Quarter: 2022Q2

REPORT INFORMATION
  Report Type: Report from Study
  Country: FR (occurrence: FR)
  Receive Date: 20201019
  Receipt Date: 20220511
  Transmission Date: 20220721
  Serious: Yes (Death, Hospitalization, Other)
  Sender: FDA-Public Use
  Company Number: FR-GLAXOSMITHKLINE-FR2020EME166399

PATIENT
  Age: 63 Year
  Sex: Male
  Weight: 64 kg

DRUGS (4)
  1. BELANTAMAB MAFODOTIN [Suspect]
     Active Substance: BELANTAMAB MAFODOTIN
     Indication: Plasma cell myeloma
     Dosage: 2.5 MG/KG, CYC
     Route: 042
     Dates: start: 20200526
  2. BELANTAMAB MAFODOTIN [Suspect]
     Active Substance: BELANTAMAB MAFODOTIN
     Dosage: 2.5 MG/KG, CYC
     Route: 042
     Dates: start: 20200618
  3. BELANTAMAB MAFODOTIN [Suspect]
     Active Substance: BELANTAMAB MAFODOTIN
     Dosage: 2.5 MG/KG, CYCLE 3
     Route: 042
     Dates: start: 20200710
  4. BELANTAMAB MAFODOTIN [Suspect]
     Active Substance: BELANTAMAB MAFODOTIN
     Dosage: 1.25 MG/KG, CYCLE 4
     Route: 042
     Dates: start: 20200810, end: 20200810

REACTIONS (11)
  - Death [Fatal]
  - Chondrocalcinosis [Unknown]
  - Arthritis [Unknown]
  - Visual acuity reduced [Not Recovered/Not Resolved]
  - Condition aggravated [Unknown]
  - Corneal epithelial microcysts [Unknown]
  - Keratopathy [Unknown]
  - Inflammation [Recovered/Resolved]
  - Inappropriate schedule of product administration [Unknown]
  - Incorrect dose administered [Unknown]
  - Product prescribing error [Unknown]

NARRATIVE: CASE EVENT DATE: 20200610
